FAERS Safety Report 16692504 (Version 5)
Quarter: 2019Q4

REPORT INFORMATION
  Report Type: Spontaneous
  Country: US (occurrence: US)
  Receive Date: 20190812
  Receipt Date: 20191129
  Transmission Date: 20200122
  Serious: Yes (Life-Threatening, Other)
  Sender: FDA-Public Use
  Company Number: US-009507513-1908USA002483

PATIENT
  Age: 65 Year
  Sex: Female

DRUGS (8)
  1. PROVENTIL [Suspect]
     Active Substance: ALBUTEROL
     Dosage: UNK, TAKEN WHEN NEED (PRN)
     Dates: start: 20190727
  2. PROVENTIL [Suspect]
     Active Substance: ALBUTEROL
     Dosage: UNK, TAKEN WHEN NEED (PRN)
     Dates: start: 20190727
  3. PROVENTIL [Suspect]
     Active Substance: ALBUTEROL
     Dosage: UNK, TAKEN WHEN NEED (PRN)
     Dates: start: 20190727
  4. PROVENTIL [Suspect]
     Active Substance: ALBUTEROL
     Dosage: UNK, TAKEN WHEN NEED (PRN)
     Dates: start: 2019
  5. PROVENTIL [Suspect]
     Active Substance: ALBUTEROL
     Dosage: 2 DOSAGE FORM
     Route: 055
  6. PROVENTIL [Suspect]
     Active Substance: ALBUTEROL
     Dosage: UNK, TAKEN WHEN NEED (PRN)
     Dates: start: 2019
  7. PROVENTIL [Suspect]
     Active Substance: ALBUTEROL
     Indication: ASTHMA
     Dosage: UNK, TAKEN WHEN NEED (PRN)
     Route: 055
  8. PROVENTIL [Suspect]
     Active Substance: ALBUTEROL
     Dosage: 2 DOSAGE FORM
     Route: 055

REACTIONS (9)
  - Dyspnoea [Recovered/Resolved]
  - Poor quality device used [Unknown]
  - Anxiety [Recovered/Resolved]
  - Deafness [Unknown]
  - Tooth infection [Unknown]
  - Expired product administered [Unknown]
  - Asthma [Not Recovered/Not Resolved]
  - Product quality issue [Unknown]
  - Blood pressure abnormal [Unknown]

NARRATIVE: CASE EVENT DATE: 20190727
